FAERS Safety Report 9160329 (Version 1)
Quarter: 2013Q1

REPORT INFORMATION
  Report Type: Spontaneous
  Country: DK (occurrence: None)
  Receive Date: 20130214
  Receipt Date: 20130214
  Transmission Date: 20140127
  Serious: Yes (Other)
  Sender: FDA-Public Use
  Company Number: 2013MA001103

PATIENT
  Age: 54 Year
  Sex: Female

DRUGS (6)
  1. EPIRUBICIN HYDROCHLORIDE [Suspect]
     Indication: BREAST CANCER
     Route: 042
     Dates: start: 20121206
  2. FLUOROURACIL (FLUOROURACIL) [Suspect]
     Indication: BREAST CANCER
     Route: 042
     Dates: start: 20121206
  3. CYCLOPHOSPHAMIDE [Suspect]
     Route: 042
     Dates: start: 20121206
  4. TENORETIC [Concomitant]
  5. XANAX [Concomitant]
  6. TAVOR [Concomitant]

REACTIONS (3)
  - Neutropenia [None]
  - Nausea [None]
  - Asthenia [None]
